FAERS Safety Report 4996421-9 (Version None)
Quarter: 2006Q2

REPORT INFORMATION
  Report Type: 
  Country: None (occurrence: None)
  Receive Date: 20060505
  Receipt Date: 20060425
  Transmission Date: 20061013
  Serious: Yes (Other)
  Sender: FDA-Public Use
  Company Number: 2006022064

PATIENT
  Age: 18 Year
  Sex: Female

DRUGS (6)
  1. DILANTIN [Suspect]
     Indication: VASCULITIS CEREBRAL
     Dosage: 300 MG (1 D), ORAL
     Route: 048
     Dates: start: 20050101
  2. CYTOXAN [Suspect]
     Indication: VASCULITIS CEREBRAL
     Dosage: (AS NECESSARY), INTRAVENOUS
     Route: 042
  3. METOCLOPRAMIDE [Suspect]
     Indication: ILL-DEFINED DISORDER
     Dosage: (AS NECESSARY)
  4. KYTRIL [Suspect]
     Indication: ILL-DEFINED DISORDER
     Dosage: (INTERVAL : X 1)
  5. ALL OTHER THERAPEUTIC PRODUCTS (ALL OTHER THERAPEUTIC PRODUCTS) [Suspect]
     Indication: ILL-DEFINED DISORDER
     Dosage: (AS NECESSARY)
  6. KEPPRA [Concomitant]

REACTIONS (7)
  - ANTICONVULSANT DRUG LEVEL BELOW THERAPEUTIC [None]
  - ANTICONVULSANT DRUG LEVEL DECREASED [None]
  - COMA [None]
  - CONVULSION [None]
  - DISEASE PROGRESSION [None]
  - DRUG INTERACTION [None]
  - PHARMACEUTICAL PRODUCT COMPLAINT [None]
